FAERS Safety Report 8462686 (Version 5)
Quarter: 2012Q4

REPORT INFORMATION
  Report Type: 
  Country: JP (occurrence: JP)
  Receive Date: 20120316
  Receipt Date: 20121109
  Transmission Date: 20130627
  Serious: Yes (Hospitalization)
  Sender: FDA-Public Use
  Company Number: JP-JNJFOC-20120305353

PATIENT
  Age: 73 Year
  Sex: Male
  Weight: 44 kg

DRUGS (5)
  1. REMICADE [Suspect]
     Indication: ERYTHRODERMIC PSORIASIS
     Route: 042
     Dates: start: 20110623
  2. REMICADE [Suspect]
     Indication: ERYTHRODERMIC PSORIASIS
     Dosage: 3rd dose
     Route: 042
     Dates: start: 20110804
  3. ARICEPT D [Concomitant]
     Dosage: 5 mg dose for one treatment
     Route: 048
  4. ALLEGRA [Concomitant]
     Dosage: 60 mg dose for one treatment
     Route: 048
  5. ISCOTIN [Concomitant]
     Dosage: 100 mg dose for one treatment
     Route: 048

REACTIONS (1)
  - Polymyositis [Recovering/Resolving]
